FAERS Safety Report 5163405-X (Version None)
Quarter: 2006Q4

REPORT INFORMATION
  Report Type: 
  Country: None (occurrence: None)
  Receive Date: 20061204
  Receipt Date: 20061120
  Transmission Date: 20070319
  Serious: Yes (Other)
  Sender: FDA-Public Use
  Company Number: FR-BAYER-200611123BFR

PATIENT
  Sex: Female

DRUGS (1)
  1. ADALATE LP [Suspect]
     Indication: THREATENED LABOUR
     Route: 048

REACTIONS (2)
  - DRUG EXPOSURE DURING PREGNANCY [None]
  - TACHYCARDIA FOETAL [None]
